FAERS Safety Report 5316625-5 (Version None)
Quarter: 2007Q2

REPORT INFORMATION
  Report Type: 
  Country: None (occurrence: None)
  Receive Date: 20070504
  Receipt Date: 20070503
  Transmission Date: 20071010
  Serious: Yes (Hospitalization)
  Sender: FDA-Public Use
  Company Number: US-BRISTOL-MYERS SQUIBB COMPANY-13768866

PATIENT
  Age: 65 Year
  Sex: Female
  Weight: 59 kg

DRUGS (1)
  1. QUESTRAN [Suspect]
     Indication: CROHN'S DISEASE
     Route: 048
     Dates: start: 19710101

REACTIONS (3)
  - FISTULA [None]
  - INFECTION [None]
  - INTESTINAL STENOSIS [None]
